FAERS Safety Report 6955248-9 (Version None)
Quarter: 2010Q3

REPORT INFORMATION
  Report Type: 
  Country: None (occurrence: None)
  Receive Date: 20100830
  Receipt Date: 20100816
  Transmission Date: 20110219
  Serious: No
  Sender: FDA-Public Use
  Company Number: US-B.I. PHARMACEUTICALS,INC./RIDGEFIELD-2010-BP-03021BP

PATIENT
  Age: 63 Year
  Sex: Female

DRUGS (5)
  1. SPIRIVA [Suspect]
     Indication: FIBROSIS
     Dosage: 18 MCG
     Route: 055
     Dates: start: 20080101
  2. SPIRIVA [Suspect]
     Indication: EMPHYSEMA
  3. GLIPIZIDE [Concomitant]
     Indication: DIABETES MELLITUS
  4. CELEBREX [Concomitant]
     Indication: ARTHROPATHY
  5. NEXIUM [Concomitant]
     Indication: PROPHYLAXIS

REACTIONS (9)
  - ARTHRITIS [None]
  - DRUG INEFFECTIVE [None]
  - DYSURIA [None]
  - EYE PAIN [None]
  - FEELING JITTERY [None]
  - NAUSEA [None]
  - POLLAKIURIA [None]
  - URINE FLOW DECREASED [None]
  - VISION BLURRED [None]
